FAERS Safety Report 4425452-2 (Version None)
Quarter: 2004Q3

REPORT INFORMATION
  Report Type: 
  Country: None (occurrence: None)
  Receive Date: 20040813
  Receipt Date: 20040804
  Transmission Date: 20050211
  Serious: Yes (Life-Threatening)
  Sender: FDA-Public Use
  Company Number: JP-ROCHE-376692

PATIENT
  Age: 54 Year
  Sex: Female

DRUGS (4)
  1. ROCEPHIN [Suspect]
     Indication: DIARRHOEA
     Route: 042
     Dates: start: 20040507, end: 20040508
  2. LEVOFLOXACIN [Concomitant]
     Dates: start: 20040507
  3. LOPERAMIDE HYDROCHLORIDE [Concomitant]
  4. INSULIN [Concomitant]
     Dosage: 20 IU MORNING 30 IU EVENING
     Route: 058

REACTIONS (21)
  - ABDOMINAL RIGIDITY [None]
  - ASCITES [None]
  - DIABETES MELLITUS [None]
  - GASTROINTESTINAL MUCOSAL NECROSIS [None]
  - GASTROINTESTINAL NECROSIS [None]
  - GASTROINTESTINAL OEDEMA [None]
  - HAEMORRHAGE [None]
  - HEPATIC FUNCTION ABNORMAL [None]
  - HYPERGLYCAEMIA [None]
  - HYPOALBUMINAEMIA [None]
  - INFLAMMATION [None]
  - JAUNDICE [None]
  - MULTI-ORGAN FAILURE [None]
  - NECROSIS ISCHAEMIC [None]
  - PATHOGEN RESISTANCE [None]
  - PERITONITIS [None]
  - PLEURAL EFFUSION [None]
  - PURULENCE [None]
  - PYREXIA [None]
  - STAPHYLOCOCCAL INFECTION [None]
  - TENDERNESS [None]
